FAERS Safety Report 24876185 (Version 3)
Quarter: 2025Q3

REPORT INFORMATION
  Report Type: Spontaneous
  Country: CA (occurrence: CA)
  Receive Date: 20250123
  Receipt Date: 20250812
  Transmission Date: 20251020
  Serious: Yes (Other)
  Sender: INTERCEPT PHARMACEUTICALS
  Company Number: CA-ADVANZ PHARMA-202411009628

PATIENT
  Sex: Female
  Weight: 59 kg

DRUGS (6)
  1. OCALIVA [Suspect]
     Active Substance: OBETICHOLIC ACID
     Indication: Primary biliary cholangitis
     Route: 048
     Dates: start: 20241030
  2. OCALIVA [Suspect]
     Active Substance: OBETICHOLIC ACID
     Route: 048
     Dates: end: 20250122
  3. URSODIOL [Concomitant]
     Active Substance: URSODIOL
     Dates: start: 202308
  4. DULOXETINE [Concomitant]
     Active Substance: DULOXETINE
     Indication: Neurodevelopmental disorder
  5. FLUTICASONE [Concomitant]
     Active Substance: FLUTICASONE
     Indication: Asthma
  6. SYMBICORT [Concomitant]
     Active Substance: BUDESONIDE\FORMOTEROL FUMARATE DIHYDRATE
     Indication: Asthma

REACTIONS (6)
  - Pneumonia [Unknown]
  - COVID-19 [Recovering/Resolving]
  - Immune system disorder [Unknown]
  - Illness [Unknown]
  - Constipation [Not Recovered/Not Resolved]
  - Abdominal pain upper [Not Recovered/Not Resolved]
